FAERS Safety Report 8758643 (Version 10)
Quarter: 2013Q3

REPORT INFORMATION
  Report Type: Report from Study
  Country: US (occurrence: US)
  Receive Date: 20120829
  Receipt Date: 20130925
  Transmission Date: 20140515
  Serious: Yes (Death, Life-Threatening, Hospitalization, Other)
  Sender: FDA-Public Use
  Company Number: US-SANOFI-AVENTIS-2012SA061061

PATIENT
  Age: 69 Year
  Sex: Female
  Weight: 78.2 kg

DRUGS (17)
  1. DOCETAXEL [Suspect]
     Indication: NON-SMALL CELL LUNG CANCER STAGE IV
     Dosage: DAY 1 OF 21 DAY CYCLE
     Route: 041
     Dates: start: 20120214, end: 20120214
  2. DOCETAXEL [Suspect]
     Indication: NON-SMALL CELL LUNG CANCER STAGE IV
     Dosage: DAY 1 OF 21 DAY CYCLE
     Route: 041
     Dates: start: 20120306, end: 20120306
  3. DOCETAXEL [Suspect]
     Indication: NON-SMALL CELL LUNG CANCER STAGE IV
     Dosage: DAY 1 OF 21 DAY CYCLE
     Route: 041
     Dates: start: 20120403, end: 20120403
  4. INVESTIGATIONAL DRUG [Suspect]
     Indication: NON-SMALL CELL LUNG CANCER STAGE IV
     Dosage: DAY 1 OF 21 DAY CYCLE
     Route: 042
     Dates: start: 20120214, end: 20120214
  5. INVESTIGATIONAL DRUG [Suspect]
     Indication: NON-SMALL CELL LUNG CANCER STAGE IV
     Dosage: DAY 1 OF 21 DAY CYCLE
     Route: 042
     Dates: start: 20120306, end: 20120306
  6. INVESTIGATIONAL DRUG [Suspect]
     Indication: NON-SMALL CELL LUNG CANCER STAGE IV
     Dosage: DAY 1 OF 21 DAY CYCLE
     Route: 042
     Dates: start: 20120403, end: 20120403
  7. PROMETHAZINE [Concomitant]
     Indication: NAUSEA
     Dates: start: 20120403, end: 20120416
  8. COREG [Concomitant]
     Indication: HYPERTENSION
     Dates: start: 2009
  9. LOMOTIL [Concomitant]
     Indication: DIARRHOEA
     Dates: start: 20120404
  10. PERCOCET [Concomitant]
     Indication: PAIN
     Dates: start: 20111111
  11. LORAZEPAM [Concomitant]
     Indication: ANXIETY
     Dates: start: 20120306
  12. ALLOPURINOL [Concomitant]
     Indication: GOUT
     Dates: start: 2000
  13. POTASSIUM [Concomitant]
     Indication: ELECTROLYTE IMBALANCE
     Dates: start: 20120411, end: 20120411
  14. METHYLPREDNISOLONE [Concomitant]
     Indication: FATIGUE
     Dates: start: 20120411, end: 20120411
  15. DEXAMETHASONE [Concomitant]
     Indication: NAUSEA
     Dates: start: 20120402, end: 20120404
  16. DEXAMETHASONE [Concomitant]
     Indication: NAUSEA
     Dates: start: 20120402, end: 20120404
  17. ZOFRAN [Concomitant]
     Indication: NAUSEA
     Dates: start: 20120403, end: 20120403

REACTIONS (3)
  - Renal failure acute [Fatal]
  - Thrombocytopenia [Not Recovered/Not Resolved]
  - Syncope [Recovered/Resolved]
